FAERS Safety Report 18733591 (Version 2)
Quarter: 2021Q1

REPORT INFORMATION
  Report Type: Report from Study
  Country: JP (occurrence: JP)
  Receive Date: 20210113
  Receipt Date: 20210221
  Transmission Date: 20210419
  Serious: Yes (Hospitalization, Other)
  Sender: FDA-Public Use
  Company Number: JP-SA-2021SA005321

PATIENT
  Age: 74 Year
  Sex: Female
  Weight: 38.5 kg

DRUGS (10)
  1. CALONAL [Concomitant]
     Active Substance: ACETAMINOPHEN
     Indication: PROPHYLAXIS
     Dosage: 600 MG, QD
     Route: 048
     Dates: start: 20190809, end: 20190927
  2. ALEMTUZUMAB [Suspect]
     Active Substance: ALEMTUZUMAB
     Dosage: 30 MG, TIW
     Route: 041
     Dates: start: 20190811, end: 20190902
  3. FLOMOX [CEFCAPENE PIVOXIL HYDROCHLORIDE] [Suspect]
     Active Substance: CEFCAPENE PIVOXIL HYDROCHLORIDE
     Indication: CYSTITIS
     Dosage: 100 MG, TID
     Route: 048
     Dates: start: 20191023, end: 20191113
  4. ALEMTUZUMAB [Suspect]
     Active Substance: ALEMTUZUMAB
     Dosage: 10 MG/DOSE
     Route: 041
     Dates: start: 20190810, end: 20190810
  5. ACICLOVIR [Concomitant]
     Active Substance: ACYCLOVIR
     Indication: INFECTION PROPHYLAXIS
     Dosage: 200 MG, QD
     Route: 048
     Dates: start: 20190810, end: 20190901
  6. ALEMTUZUMAB [Suspect]
     Active Substance: ALEMTUZUMAB
     Indication: CHRONIC LYMPHOCYTIC LEUKAEMIA
     Dosage: 3 MG/DOSE
     Route: 041
     Dates: start: 20190809, end: 20190809
  7. ALEMTUZUMAB [Suspect]
     Active Substance: ALEMTUZUMAB
     Dosage: 30 MG, TIW
     Route: 041
     Dates: start: 20190918, end: 20191120
  8. SOLU?CORTEF [Concomitant]
     Active Substance: HYDROCORTISONE SODIUM SUCCINATE
     Indication: PYREXIA
     Dosage: 100 MG, QD
     Route: 042
     Dates: start: 20190809
  9. SOLU?CORTEF [Concomitant]
     Active Substance: HYDROCORTISONE SODIUM SUCCINATE
     Indication: PROPHYLAXIS
  10. EDARAVONE [Concomitant]
     Active Substance: EDARAVONE
     Indication: CEREBRAL INFARCTION
     Dosage: 30 MG, BID
     Route: 042
     Dates: start: 20190904, end: 20190908

REACTIONS (6)
  - Cerebral infarction [Recovering/Resolving]
  - Febrile neutropenia [Recovered/Resolved]
  - Cystitis [Recovering/Resolving]
  - Febrile neutropenia [Recovered/Resolved]
  - Pyrexia [Recovered/Resolved]
  - Rash [Recovered/Resolved]

NARRATIVE: CASE EVENT DATE: 20190809
